FAERS Safety Report 16943411 (Version 1)
Quarter: 2019Q4

REPORT INFORMATION
  Report Type: Spontaneous
  Country: IN (occurrence: IN)
  Receive Date: 20191022
  Receipt Date: 20191022
  Transmission Date: 20200122
  Serious: No
  Sender: FDA-Public Use
  Company Number: IN-LUPIN LIMITED-2019-03737

PATIENT
  Age: 23 Year
  Sex: Female

DRUGS (1)
  1. YAMINI TABS [Suspect]
     Active Substance: DROSPIRENONE\ETHINYL ESTRADIOL
     Indication: POLYCYSTIC OVARIES
     Dosage: 01 DOSAGE FORM, QD
     Route: 048
     Dates: start: 20190605

REACTIONS (2)
  - Product use in unapproved indication [Unknown]
  - Product dose omission [Unknown]

NARRATIVE: CASE EVENT DATE: 20190605
